FAERS Safety Report 8771784 (Version 1)
Quarter: 2012Q4

REPORT INFORMATION
  Report Type: 
  Country: DE (occurrence: DE)
  Receive Date: 20120905
  Receipt Date: 20120905
  Transmission Date: 20130627
  Serious: Yes (Other)
  Sender: FDA-Public Use
  Company Number: DE-ROCHE-611106

PATIENT

DRUGS (2)
  1. PEGASYS [Suspect]
     Indication: HEPATITIS C
     Route: 065
  2. COPEGUS [Suspect]
     Indication: HEPATITIS C
     Dosage: TDD: 800 mg to 1200 mg
     Route: 065

REACTIONS (9)
  - Major depression [Unknown]
  - Mania [Unknown]
  - Drug abuse [Unknown]
  - Self injurious behaviour [Unknown]
  - Retinopathy [Unknown]
  - Glioblastoma [Unknown]
  - Renal failure [Unknown]
  - Brain neoplasm [Unknown]
  - Jaundice [Unknown]
